FAERS Safety Report 6589456-6 (Version None)
Quarter: 2010Q1

REPORT INFORMATION
  Report Type: 
  Country: None (occurrence: None)
  Receive Date: 20100218
  Receipt Date: 20100208
  Transmission Date: 20100710
  Serious: Yes (Hospitalization, Disabling, Other)
  Sender: FDA-Public Use
  Company Number: US-MERCK-0804USA00365

PATIENT
  Age: 53 Year
  Sex: Female

DRUGS (2)
  1. FOSAMAX [Suspect]
     Indication: OSTEOPENIA
     Route: 048
     Dates: start: 20020101
  2. FOSAMAX [Suspect]
     Route: 048
     Dates: start: 20030101, end: 20060101

REACTIONS (25)
  - ADVERSE EVENT [None]
  - ANXIETY [None]
  - BONE DENSITY DECREASED [None]
  - BRUXISM [None]
  - CHEST PAIN [None]
  - CONTUSION [None]
  - DEPRESSION [None]
  - DIZZINESS [None]
  - ELECTROCARDIOGRAM ABNORMAL [None]
  - FOOT DEFORMITY [None]
  - INFLUENZA [None]
  - LIGAMENT DISORDER [None]
  - ORAL INFECTION [None]
  - OSTEOMYELITIS [None]
  - OSTEONECROSIS [None]
  - PAIN IN JAW [None]
  - PALPITATIONS [None]
  - PANIC ATTACK [None]
  - PNEUMONIA [None]
  - ROTATOR CUFF SYNDROME [None]
  - SLEEP APNOEA SYNDROME [None]
  - STREPTOCOCCAL INFECTION [None]
  - SUICIDAL IDEATION [None]
  - TEMPOROMANDIBULAR JOINT SYNDROME [None]
  - VIRAL INFECTION [None]
